FAERS Safety Report 19513895 (Version 1)
Quarter: 2021Q3

REPORT INFORMATION
  Report Type: Spontaneous
  Country: IN (occurrence: IN)
  Receive Date: 20210709
  Receipt Date: 20210709
  Transmission Date: 20211014
  Serious: Yes (Other)
  Sender: FDA-Public Use
  Company Number: NVSC2021IN147908

PATIENT
  Age: 85 Year
  Sex: Female

DRUGS (2)
  1. AMARYL M [Concomitant]
     Active Substance: GLIMEPIRIDE\METFORMIN
     Indication: PRODUCT USED FOR UNKNOWN INDICATION
     Route: 065
  2. PAGENAX [Suspect]
     Active Substance: BROLUCIZUMAB
     Indication: NEOVASCULAR AGE-RELATED MACULAR DEGENERATION
     Dosage: 0.05 ML, QMO
     Route: 047

REACTIONS (3)
  - Disease progression [Recovering/Resolving]
  - Neovascular age-related macular degeneration [Recovering/Resolving]
  - Vision blurred [Recovering/Resolving]
